FAERS Safety Report 15863307 (Version 4)
Quarter: 2019Q1

REPORT INFORMATION
  Report Type: Spontaneous
  Country: BE (occurrence: BE)
  Receive Date: 20190124
  Receipt Date: 20190227
  Transmission Date: 20190417
  Serious: Yes (Other)
  Sender: FDA-Public Use
  Company Number: PHHY2019BE010935

PATIENT
  Age: 59 Year
  Sex: Male

DRUGS (5)
  1. RITUXIMAB. [Suspect]
     Active Substance: RITUXIMAB
     Indication: SYSTEMIC SCLERODERMA
     Dosage: 800/160 MG, QD
     Route: 042
  2. METHYLPREDNISOLONE. [Suspect]
     Active Substance: METHYLPREDNISOLONE
     Indication: SYSTEMIC SCLERODERMA
     Dosage: 6 MG, QD
     Route: 065
  3. LEDERTREXATE [Suspect]
     Active Substance: METHOTREXATE
     Indication: SYSTEMIC SCLERODERMA
     Dosage: 20 MG, QW
     Route: 065
  4. SULFAMETHOXAZOL [Suspect]
     Active Substance: SULFAMETHOXAZOLE
     Indication: PNEUMOCYSTIS JIROVECII PNEUMONIA
     Dosage: 960 MG, QD (800/160MG)
     Route: 065
  5. SULFAMETHOXAZOL [Suspect]
     Active Substance: SULFAMETHOXAZOLE
     Dosage: 20 MG, (800/160 MG)
     Route: 065

REACTIONS (10)
  - Hypercalcaemia [Recovered/Resolved]
  - Pneumocystis jirovecii infection [Recovering/Resolving]
  - Asthenia [Unknown]
  - Acute kidney injury [Recovering/Resolving]
  - Product use in unapproved indication [Unknown]
  - Immune reconstitution inflammatory syndrome [Unknown]
  - Blood 1,25-dihydroxycholecalciferol increased [Unknown]
  - Neutropenia [Unknown]
  - Cough [Unknown]
  - Dyspnoea [Unknown]
